FAERS Safety Report 5248225-X (Version None)
Quarter: 2007Q1

REPORT INFORMATION
  Report Type: 
  Country: None (occurrence: None)
  Receive Date: 20070227
  Receipt Date: 20060727
  Transmission Date: 20070707
  Serious: No
  Sender: FDA-Public Use
  Company Number: US-BRISTOL-MYERS SQUIBB COMPANY-13481221

PATIENT
  Age: 67 Year
  Sex: Female
  Weight: 73 kg

DRUGS (6)
  1. GLUCOPHAGE [Suspect]
     Indication: DIABETES MELLITUS NON-INSULIN-DEPENDENT
     Dosage: DOSE: EVERY MORNING
     Route: 048
     Dates: start: 20060727, end: 20060728
  2. GLUCOPHAGE [Suspect]
     Route: 048
     Dates: start: 20060727, end: 20060728
  3. GLUCOPHAGE [Suspect]
     Dosage: DOSE: EVERY EVENING
     Route: 048
     Dates: start: 20060727, end: 20060728
  4. BYETTA [Suspect]
     Indication: DIABETES MELLITUS NON-INSULIN-DEPENDENT
     Route: 058
     Dates: start: 20060724
  5. BYETTA [Suspect]
     Route: 058
     Dates: start: 20060501, end: 20060723
  6. STARLIX [Concomitant]
     Dates: start: 20020101, end: 20060501

REACTIONS (5)
  - BLOOD GLUCOSE INCREASED [None]
  - INJECTION SITE ERYTHEMA [None]
  - UNEVALUABLE EVENT [None]
  - WEIGHT DECREASED [None]
  - WEIGHT INCREASED [None]
